FAERS Safety Report 22805703 (Version 5)
Quarter: 2023Q4

REPORT INFORMATION
  Report Type: Spontaneous
  Country: US (occurrence: US)
  Receive Date: 20230809
  Receipt Date: 20231003
  Transmission Date: 20240110
  Serious: No
  Sender: FDA-Public Use
  Company Number: US-PFIZER INC-202300269460

PATIENT
  Age: 74 Year
  Sex: Female

DRUGS (2)
  1. IBRANCE [Suspect]
     Active Substance: PALBOCICLIB
     Indication: Breast cancer metastatic
     Dosage: ONCE A DAY FOR 3 WEEKS AND THEN SKIP 1 WEEK
     Route: 048
     Dates: start: 202305
  2. METFORMIN [Concomitant]
     Active Substance: METFORMIN HYDROCHLORIDE
     Indication: Blood glucose increased
     Dosage: 750 MG, 2X/DAY
     Route: 048

REACTIONS (10)
  - Neoplasm progression [Unknown]
  - Stomatitis [Recovering/Resolving]
  - Oral disorder [Unknown]
  - Tongue disorder [Recovering/Resolving]
  - Glossodynia [Recovering/Resolving]
  - Feeling abnormal [Unknown]
  - Tooth disorder [Unknown]
  - Toothache [Unknown]
  - Tumour marker decreased [Unknown]
  - Inappropriate schedule of product administration [Unknown]
